FAERS Safety Report 15626098 (Version 1)
Quarter: 2018Q4

REPORT INFORMATION
  Report Type: Spontaneous
  Country: US (occurrence: US)
  Receive Date: 20181116
  Receipt Date: 20181116
  Transmission Date: 20190205
  Serious: Yes (Life-Threatening, Hospitalization)
  Sender: FDA-Public Use
  Company Number: US-MYLANLABS-2018M1085815

PATIENT
  Age: 17 Year
  Sex: Female

DRUGS (6)
  1. NAPROXEN. [Suspect]
     Active Substance: NAPROXEN
     Indication: PRODUCT USED FOR UNKNOWN INDICATION
     Dosage: NAPROXEN 220 MG PO AS NEEDED.
     Route: 048
  2. SOLU-MEDROL [Concomitant]
     Active Substance: METHYLPREDNISOLONE SODIUM SUCCINATE
     Indication: ANAPHYLACTIC REACTION
     Route: 042
  3. MACROBID [Concomitant]
     Active Substance: NITROFURANTOIN\NITROFURANTOIN MONOHYDRATE
     Indication: URINARY TRACT INFECTION
     Route: 030
  4. TORADOL [Suspect]
     Active Substance: KETOROLAC TROMETHAMINE
     Indication: ANAPHYLACTIC REACTION
     Route: 030
  5. SALINE                             /00075401/ [Concomitant]
     Active Substance: SODIUM CHLORIDE
     Indication: ANAPHYLACTIC REACTION
     Dosage: 1 LITRE OF 0.9% SALINE
     Route: 065
  6. DIPHENHYDRAMINE. [Concomitant]
     Active Substance: DIPHENHYDRAMINE
     Indication: ANAPHYLACTIC REACTION
     Route: 042

REACTIONS (8)
  - Respiratory distress [Recovering/Resolving]
  - Alopecia [Recovering/Resolving]
  - Stevens-Johnson syndrome [Recovering/Resolving]
  - Respiratory tract oedema [Recovering/Resolving]
  - Hypophagia [Recovering/Resolving]
  - Toxic epidermal necrolysis [Recovering/Resolving]
  - Nail avulsion [Recovering/Resolving]
  - Skin exfoliation [Recovering/Resolving]
